FAERS Safety Report 15256609 (Version 4)
Quarter: 2018Q3

REPORT INFORMATION
  Report Type: Report from Study
  Country: US (occurrence: US)
  Receive Date: 20180808
  Receipt Date: 20180928
  Transmission Date: 20181010
  Serious: Yes (Other)
  Sender: FDA-Public Use
  Company Number: US-BAYER-2018-139674

PATIENT
  Age: 67 Year
  Sex: Female

DRUGS (1)
  1. STIVARGA [Suspect]
     Active Substance: REGORAFENIB
     Indication: COLORECTAL CANCER
     Dosage: 80 MG, QD
     Route: 048
     Dates: start: 20180717, end: 201809

REACTIONS (18)
  - Dysphonia [Not Recovered/Not Resolved]
  - Stomatitis [None]
  - Off label use [None]
  - Diarrhoea [None]
  - Weight decreased [Not Recovered/Not Resolved]
  - Feeling abnormal [None]
  - Headache [Not Recovered/Not Resolved]
  - Constipation [Not Recovered/Not Resolved]
  - Arthralgia [None]
  - Blood pressure increased [None]
  - Oral pain [Not Recovered/Not Resolved]
  - Weight decreased [None]
  - Dry mouth [None]
  - Stomatitis [None]
  - Musculoskeletal chest pain [None]
  - Cheilitis [None]
  - Arthralgia [Recovering/Resolving]
  - Neuropathy peripheral [Not Recovered/Not Resolved]

NARRATIVE: CASE EVENT DATE: 2018
